FAERS Safety Report 4922136-9 (Version None)
Quarter: 2006Q1

REPORT INFORMATION
  Report Type: 
  Country: None (occurrence: None)
  Receive Date: 20060224
  Receipt Date: 20060216
  Transmission Date: 20060701
  Serious: Yes (Hospitalization)
  Sender: FDA-Public Use
  Company Number: US-JNJFOC-20060204606

PATIENT
  Sex: Female
  Weight: 58.97 kg

DRUGS (2)
  1. ORTHO EVRA [Suspect]
     Route: 062
     Dates: start: 20030601, end: 20051201
  2. ZYPREXA [Suspect]
     Dates: start: 20031001, end: 20031001

REACTIONS (4)
  - ANAPHYLACTIC SHOCK [None]
  - DEPRESSION [None]
  - EMOTIONAL DISORDER [None]
  - PSYCHOTIC DISORDER [None]
